FAERS Safety Report 7533045-3 (Version None)
Quarter: 2011Q2

REPORT INFORMATION
  Report Type: 
  Country: None (occurrence: None)
  Receive Date: 20110608
  Receipt Date: 20110526
  Transmission Date: 20111010
  Serious: Yes (Hospitalization)
  Sender: FDA-Public Use
  Company Number: US-UCBSA-034033

PATIENT
  Sex: Male
  Weight: 113 kg

DRUGS (4)
  1. LUNESTA [Concomitant]
     Indication: SLEEP DISORDER
     Dosage: BED TIME
     Route: 048
  2. PREDNISONE [Concomitant]
     Indication: CROHN'S DISEASE
     Route: 048
  3. LIALDA [Concomitant]
     Indication: CROHN'S DISEASE
     Route: 048
  4. CIMZIA [Suspect]
     Indication: CROHN'S DISEASE
     Route: 058
     Dates: start: 20110303

REACTIONS (2)
  - ABDOMINAL PAIN [None]
  - RECTAL HAEMORRHAGE [None]
